FAERS Safety Report 16988301 (Version 1)
Quarter: 2019Q4

REPORT INFORMATION
  Report Type: Report from Study
  Country: CA (occurrence: CA)
  Receive Date: 20191104
  Receipt Date: 20191104
  Transmission Date: 20200122
  Serious: Yes (Other)
  Sender: FDA-Public Use
  Company Number: CA-GLAXOSMITHKLINE-CA2019AMR195192

PATIENT
  Sex: Female

DRUGS (1)
  1. MEPOLIZUMAB [Suspect]
     Active Substance: MEPOLIZUMAB
     Indication: ASTHMA
     Dosage: 100 MG, Z (MONTHLY)
     Route: 042
     Dates: start: 20180418

REACTIONS (6)
  - Rhinorrhoea [Unknown]
  - Therapeutic product effect incomplete [Unknown]
  - Nasal congestion [Unknown]
  - Productive cough [Unknown]
  - Nasopharyngitis [Unknown]
  - Pulmonary congestion [Unknown]
